FAERS Safety Report 11749661 (Version 1)
Quarter: 2015Q4

REPORT INFORMATION
  Report Type: Spontaneous
  Country: US (occurrence: None)
  Receive Date: 20151116
  Receipt Date: 20151116
  Transmission Date: 20160304
  Serious: No
  Sender: FDA-Public Use
  Company Number: None

PATIENT
  Age: 61 Year
  Sex: Female

DRUGS (1)
  1. SIMPONI [Suspect]
     Active Substance: GOLIMUMAB
     Indication: RHEUMATOID ARTHRITIS
     Dosage: 50/0.5 MG/ML; Q30D
     Route: 058
     Dates: start: 20150915

REACTIONS (4)
  - Rash pruritic [None]
  - Rash [None]
  - Pruritus [None]
  - No therapeutic response [None]

NARRATIVE: CASE EVENT DATE: 20150930
